FAERS Safety Report 7204869-7 (Version None)
Quarter: 2010Q4

REPORT INFORMATION
  Report Type: 
  Country: None (occurrence: None)
  Receive Date: 20101230
  Receipt Date: 20101222
  Transmission Date: 20110411
  Serious: Yes (Other)
  Sender: FDA-Public Use
  Company Number: BR-ABBOTT-10P-020-0672566-00

PATIENT
  Sex: Female
  Weight: 51 kg

DRUGS (4)
  1. DEPAKENE [Suspect]
     Indication: EPILEPSY
     Route: 048
     Dates: start: 19950101
  2. DEPAKENE [Suspect]
     Indication: PETIT MAL EPILEPSY
     Dosage: 250MG IN THE MORNING 500MG AT NIGHT
     Route: 048
     Dates: start: 20101001, end: 20101001
  3. DEPAKENE [Suspect]
     Dates: start: 20101001
  4. DEPAKOTE [Suspect]
     Indication: PRODUCT USED FOR UNKNOWN INDICATION

REACTIONS (14)
  - ANTICONVULSANT DRUG LEVEL ABNORMAL [None]
  - APATHY [None]
  - ASTHENIA [None]
  - BLINDNESS TRANSIENT [None]
  - DEAFNESS TRANSITORY [None]
  - DRUG INEFFECTIVE [None]
  - FAECAL INCONTINENCE [None]
  - FALL [None]
  - MUSCULAR WEAKNESS [None]
  - NAUSEA [None]
  - PRESYNCOPE [None]
  - SOMNOLENCE [None]
  - TONGUE PARALYSIS [None]
  - URINARY INCONTINENCE [None]
